FAERS Safety Report 11008945 (Version 1)
Quarter: 2015Q2

REPORT INFORMATION
  Report Type: Spontaneous
  Country: IT (occurrence: None)
  Receive Date: 20150408
  Receipt Date: 20150408
  Transmission Date: 20150821
  Serious: Yes (Hospitalization)
  Sender: FDA-Public Use
  Company Number: FK201501628

PATIENT
  Age: 70 Year
  Sex: Male

DRUGS (5)
  1. DEXAMETHASONE INJECTION (MANUFACTURER UNKNOWN) (DEXAMETHASONE SODIUM PHOSPHATE) (DEXAMETHASONE SODIUM PHOSPHATE) [Suspect]
     Active Substance: DEXAMETHASONE SODIUM PHOSPHATE
     Indication: CHEMOTHERAPY
  2. BORTEZOMIB (BORTEZOMIB) [Concomitant]
     Active Substance: BORTEZOMIB
  3. PREDNISONE (PREDNISONE) [Suspect]
     Active Substance: PREDNISONE
     Indication: PRODUCT USED FOR UNKNOWN INDICATION
  4. LENALIDOMIDE [Suspect]
     Active Substance: LENALIDOMIDE
     Indication: CHEMOTHERAPY
  5. MELPHALAN (MELPHALAN) [Concomitant]
     Active Substance: MELPHALAN

REACTIONS (7)
  - Nocardiosis [None]
  - Brain abscess [None]
  - Seizure [None]
  - Hypoaesthesia [None]
  - Hypoalbuminaemia [None]
  - Pleural effusion [None]
  - Brain oedema [None]
